FAERS Safety Report 12504227 (Version 1)
Quarter: 2016Q2

REPORT INFORMATION
  Report Type: Spontaneous
  Country: US (occurrence: None)
  Receive Date: 20160627
  Receipt Date: 20160627
  Transmission Date: 20160815
  Serious: Yes (Death)
  Sender: FDA-Public Use
  Company Number: None

PATIENT
  Age: 67 Year
  Sex: Male
  Weight: 70.4 kg

DRUGS (2)
  1. PREDNISONE 5 MG [Suspect]
     Active Substance: PREDNISONE
     Route: 048
     Dates: start: 20131104, end: 20160523
  2. ABIRATERONE 1000 MG [Suspect]
     Active Substance: ABIRATERONE
     Route: 048
     Dates: start: 20131104, end: 20160523

REACTIONS (4)
  - Intracranial aneurysm [None]
  - Subarachnoid haemorrhage [None]
  - Intraventricular haemorrhage [None]
  - Hypotension [None]

NARRATIVE: CASE EVENT DATE: 20160524
